FAERS Safety Report 8474676 (Version 2)
Quarter: 2014Q3

REPORT INFORMATION
  Report Type: Spontaneous
  Country: US (occurrence: US)
  Receive Date: 20120323
  Receipt Date: 20140806
  Transmission Date: 20150326
  Serious: Yes (Life-Threatening, Hospitalization, Other)
  Sender: FDA-Public Use
  Company Number: US-BAYER-2012-027622

PATIENT
  Age: 33 Year
  Sex: Female
  Weight: 70 kg

DRUGS (2)
  1. OCELLA [Suspect]
     Active Substance: DROSPIRENONE\ETHINYL ESTRADIOL
     Dosage: UNK
     Route: 048
     Dates: start: 200911, end: 20100409
  2. NITROGLYCERIN. [Concomitant]
     Active Substance: NITROGLYCERIN
     Indication: MYOCARDIAL INFARCTION
     Dosage: 0.1 MG/H, UNK

REACTIONS (16)
  - Injection site haemorrhage [None]
  - Anxiety [None]
  - Depression [None]
  - Pain [None]
  - Psychological trauma [None]
  - Mobility decreased [None]
  - Fatigue [None]
  - Asthenia [None]
  - Myocardial infarction [None]
  - Peripheral artery stenosis [None]
  - Self esteem decreased [None]
  - Anhedonia [None]
  - Heart injury [None]
  - Pain in extremity [None]
  - Weight increased [None]
  - Insomnia [None]

NARRATIVE: CASE EVENT DATE: 2010
